FAERS Safety Report 18364139 (Version 1)
Quarter: 2020Q4

REPORT INFORMATION
  Report Type: Report from Study
  Country: US (occurrence: US)
  Receive Date: 20201009
  Receipt Date: 20201009
  Transmission Date: 20210114
  Serious: No
  Sender: FDA-Public Use
  Company Number: NVSC2020US268257

PATIENT
  Age: 52 Year
  Sex: Female

DRUGS (1)
  1. KISQALI [Suspect]
     Active Substance: RIBOCICLIB
     Indication: HEADACHE
     Route: 065
     Dates: start: 20201001

REACTIONS (1)
  - Headache [Unknown]

NARRATIVE: CASE EVENT DATE: 20201001
